FAERS Safety Report 4922219-3 (Version None)
Quarter: 2006Q1

REPORT INFORMATION
  Report Type: 
  Country: None (occurrence: None)
  Receive Date: 20060224
  Receipt Date: 20050112
  Transmission Date: 20060701
  Serious: Yes (Hospitalization)
  Sender: FDA-Public Use
  Company Number: US-MERCK-0501USA01832

PATIENT
  Age: 41 Year
  Sex: Female

DRUGS (1)
  1. VIOXX [Suspect]
     Indication: ARTHRALGIA
     Route: 048
     Dates: start: 19990101, end: 20040101

REACTIONS (18)
  - ANGINA PECTORIS [None]
  - ANXIETY [None]
  - ARTERIOSCLEROSIS [None]
  - BACK PAIN [None]
  - CEREBROVASCULAR ACCIDENT [None]
  - CHEST PAIN [None]
  - DEPRESSION [None]
  - HEADACHE [None]
  - HYPERLIPIDAEMIA [None]
  - HYPOAESTHESIA [None]
  - MIGRAINE [None]
  - MONARTHRITIS [None]
  - MUSCULAR WEAKNESS [None]
  - RADICULAR PAIN [None]
  - STRESS [None]
  - URTICARIA [None]
  - VIRAL INFECTION [None]
  - VISUAL DISTURBANCE [None]
